FAERS Safety Report 19010147 (Version 3)
Quarter: 2021Q2

REPORT INFORMATION
  Report Type: Spontaneous
  Country: BR (occurrence: BR)
  Receive Date: 20210315
  Receipt Date: 20210409
  Transmission Date: 20210717
  Serious: Yes (Other)
  Sender: FDA-Public Use
  Company Number: BR-BAYER-2021-101238

PATIENT
  Age: 64 Year
  Sex: Male

DRUGS (5)
  1. NEXAVAR [Suspect]
     Active Substance: SORAFENIB
     Indication: HEPATOCELLULAR CARCINOMA
     Dosage: 400 MG, BID
     Dates: start: 201807, end: 201812
  2. REGORAFENIB. [Suspect]
     Active Substance: REGORAFENIB
     Indication: HEPATOCELLULAR CARCINOMA
     Dosage: 160 MG, QD FOR 3 WEEKS A MONTH
     Dates: start: 201812
  3. REGORAFENIB. [Suspect]
     Active Substance: REGORAFENIB
     Indication: METASTASES TO LUNG
  4. NEXAVAR [Suspect]
     Active Substance: SORAFENIB
     Indication: METASTASES TO LUNG
  5. REGORAFENIB. [Suspect]
     Active Substance: REGORAFENIB
     Indication: METASTASES TO LYMPH NODES

REACTIONS (9)
  - Decreased appetite [None]
  - Metastases to lung [Recovering/Resolving]
  - Metastases to lymph nodes [Recovering/Resolving]
  - Necrotic lymphadenopathy [Recovered/Resolved]
  - Alpha 1 foetoprotein increased [Recovering/Resolving]
  - Hepatocellular carcinoma [Recovering/Resolving]
  - Blood bilirubin increased [None]
  - Portal vein thrombosis [Not Recovered/Not Resolved]
  - Jaundice [None]

NARRATIVE: CASE EVENT DATE: 201810
